FAERS Safety Report 17465206 (Version 2)
Quarter: 2020Q1

REPORT INFORMATION
  Report Type: Spontaneous
  Country: PL (occurrence: PL)
  Receive Date: 20200226
  Receipt Date: 20200310
  Transmission Date: 20200409
  Serious: Yes (Hospitalization)
  Sender: FDA-Public Use
  Company Number: PL-ALLERGAN-2008564US

PATIENT
  Sex: Female

DRUGS (8)
  1. DIAPREL [Concomitant]
     Active Substance: GLICLAZIDE
     Dosage: UNK, QAM
  2. PIRAMIL [Concomitant]
     Active Substance: RAMIPRIL
     Dosage: UNK, QAM
  3. CONCOR [Concomitant]
     Active Substance: BISOPROLOL FUMARATE
     Dosage: UNK, QAM
  4. DUOTRAV [Suspect]
     Active Substance: TIMOLOL MALEATE\TRAVOPROST
     Indication: GLAUCOMA
     Dosage: 2 GTT, QAM
     Route: 047
     Dates: start: 201912
  5. AMLOZEK [Concomitant]
     Active Substance: AMLODIPINE BESYLATE
     Dosage: UNK, QAM
  6. ATORIS [Concomitant]
     Active Substance: ATORVASTATIN CALCIUM
     Dosage: UNK, QHS
  7. SIOFOR [Concomitant]
     Active Substance: METFORMIN HYDROCHLORIDE
     Dosage: UNK, QHS
  8. ALPHAGAN P [Suspect]
     Active Substance: BRIMONIDINE TARTRATE
     Indication: GLAUCOMA
     Dosage: UNK
     Route: 047
     Dates: start: 201912

REACTIONS (1)
  - Cerebrovascular accident [Recovered/Resolved]

NARRATIVE: CASE EVENT DATE: 20200131
